FAERS Safety Report 5097020-3 (Version None)
Quarter: 2006Q3

REPORT INFORMATION
  Report Type: 
  Country: None (occurrence: None)
  Receive Date: 20060824
  Receipt Date: 20060729
  Transmission Date: 20061208
  Serious: Yes (Other)
  Sender: FDA-Public Use
  Company Number: CHPA2006US07101

PATIENT
  Age: 25 Year
  Sex: Female
  Weight: 63.5 kg

DRUGS (2)
  1. NICOTINE [Suspect]
     Indication: SMOKING CESSATION THERAPY
     Dosage: SEE IMAGE
     Dates: start: 20060716, end: 20060718
  2. NICOTINE [Suspect]
     Indication: SMOKING CESSATION THERAPY
     Dosage: SEE IMAGE
     Dates: start: 20060719, end: 20060719

REACTIONS (6)
  - APPLICATION SITE PRURITUS [None]
  - HYPOAESTHESIA [None]
  - MIGRAINE [None]
  - PHOTOPSIA [None]
  - TUNNEL VISION [None]
  - VISION BLURRED [None]
